FAERS Safety Report 6741981-0 (Version None)
Quarter: 2010Q2

REPORT INFORMATION
  Report Type: 
  Country: None (occurrence: None)
  Receive Date: 20100526
  Receipt Date: 20100512
  Transmission Date: 20101027
  Serious: Yes (Hospitalization)
  Sender: FDA-Public Use
  Company Number: DE-ROCHE-705045

PATIENT
  Sex: Female
  Weight: 59.4 kg

DRUGS (2)
  1. BEVACIZUMAB [Suspect]
     Dosage: CYCLE 2 STARTED ON 22 FEB 2010
     Route: 042
     Dates: start: 20100201
  2. TAXOL [Concomitant]
     Dosage: CYCLE 4 STARTED ON 22 FEB 2010
     Route: 042

REACTIONS (1)
  - OESOPHAGEAL CANDIDIASIS [None]
